FAERS Safety Report 16995746 (Version 3)
Quarter: 2020Q1

REPORT INFORMATION
  Report Type: Spontaneous
  Country: PR (occurrence: PR)
  Receive Date: 20191105
  Receipt Date: 20200219
  Transmission Date: 20200409
  Serious: Yes (Death)
  Sender: FDA-Public Use
  Company Number: PR-PFIZER INC-2019475221

PATIENT
  Age: 61 Year
  Sex: Female
  Weight: 45.35 kg

DRUGS (3)
  1. IBRANCE [Suspect]
     Active Substance: PALBOCICLIB
     Indication: BREAST CANCER FEMALE
     Dosage: 100 MG, CYCLIC (1 CAPSULE DAILY, 21 DAYS ON AND 7 DAYS REST)
     Route: 048
     Dates: start: 20191018
  2. IBRANCE [Suspect]
     Active Substance: PALBOCICLIB
     Dosage: 100 MG, CYCLIC (1 CAPSULE DAILY, 21 DAYS ON AND 7 DAYS REST)
     Route: 048
     Dates: start: 20191018
  3. IBRANCE [Suspect]
     Active Substance: PALBOCICLIB
     Dosage: 75 MG, CYCLIC (1 CAPSULE DAILY, 21 DAYS ON AND 7 DAYS REST)
     Route: 048

REACTIONS (3)
  - White blood cell count decreased [Unknown]
  - Abdominal discomfort [Recovered/Resolved]
  - Death [Fatal]

NARRATIVE: CASE EVENT DATE: 20191019
